FAERS Safety Report 9042601 (Version 1)
Quarter: 2013Q1

REPORT INFORMATION
  Report Type: Report from Study
  Country: US (occurrence: US)
  Receive Date: 20130129
  Receipt Date: 20130129
  Transmission Date: 20140127
  Serious: No
  Sender: FDA-Public Use
  Company Number: US-ABBOTT-12P-163-0908653-00

PATIENT
  Age: 27 Year
  Sex: Female

DRUGS (6)
  1. HUMIRA 40 MG/0.8 ML PEN [Suspect]
     Indication: PSORIASIS
     Dates: start: 201102, end: 201105
  2. HUMIRA 40 MG/0.8 ML PEN [Suspect]
     Dates: start: 20110929
  3. METFORMIN [Concomitant]
     Indication: OVARIAN CYST
     Dosage: 4 PILLS
  4. LEVOTHYROXINE [Concomitant]
     Indication: THYROID DISORDER
  5. INHALER [Concomitant]
     Indication: ASTHMA
  6. INHALER [Concomitant]
     Indication: BRONCHITIS CHRONIC

REACTIONS (2)
  - Inappropriate schedule of drug administration [Not Recovered/Not Resolved]
  - Skin discolouration [Not Recovered/Not Resolved]
